FAERS Safety Report 8403186-7 (Version None)
Quarter: 2012Q2

REPORT INFORMATION
  Report Type: 
  Country: None (occurrence: None)
  Receive Date: 20120601
  Receipt Date: 20120524
  Transmission Date: 20120825
  Serious: Yes (Hospitalization)
  Sender: FDA-Public Use
  Company Number: US-JNJFOC-20120520811

PATIENT
  Sex: Male
  Weight: 91.2 kg

DRUGS (20)
  1. VIMOVO [Concomitant]
  2. BUPIVACAINE HYDROCHLORIDE W/EPINEPHRINE [Concomitant]
     Indication: ANAESTHESIA
     Dates: start: 20111114
  3. KETOROLAC TROMETHAMINE [Concomitant]
     Indication: PAIN
     Dates: start: 20111114, end: 20111115
  4. SENOKOT [Concomitant]
     Indication: CONSTIPATION
     Dates: start: 20111115, end: 20111122
  5. NORCO [Concomitant]
     Indication: PAIN
  6. MIDAZOLAM [Concomitant]
     Indication: ANAESTHESIA
     Dates: start: 20111114
  7. HYDROMORPHONE HCL [Concomitant]
     Indication: PAIN
     Dates: start: 20111114
  8. GLUCOSAMINE / CHONDROITIN [Concomitant]
     Indication: OSTEOARTHRITIS
  9. LAMISIL [Concomitant]
     Indication: FUNGAL INFECTION
  10. CEFAZOLIN [Concomitant]
     Indication: PREMEDICATION
     Dates: start: 20111114, end: 20111115
  11. DEXAMETHASONE [Concomitant]
     Indication: PROPHYLAXIS OF NAUSEA AND VOMITING
     Dates: start: 20111114
  12. CLORPACTIN [Concomitant]
     Dates: start: 20111114
  13. PROPOFOL [Concomitant]
     Indication: ANAESTHESIA
     Dates: start: 20111114
  14. SODIUM CHLORIDE [Concomitant]
     Route: 042
     Dates: start: 20111114
  15. ICAR-C [Concomitant]
     Indication: ANAEMIA
  16. ONDANSETRON [Concomitant]
     Indication: PROPHYLAXIS OF NAUSEA AND VOMITING
     Dates: start: 20111114
  17. XYLOCAINE [Concomitant]
     Indication: ANAESTHESIA
     Dates: start: 20111114
  18. XARELTO [Suspect]
     Indication: THROMBOSIS PROPHYLAXIS
     Route: 048
     Dates: start: 20111114, end: 20111116
  19. MORPHINE [Concomitant]
     Indication: PAIN
     Dates: start: 20111114
  20. LACTATED RINGER'S [Concomitant]
     Indication: DEHYDRATION
     Dates: start: 20111114, end: 20111115

REACTIONS (2)
  - PULMONARY EMBOLISM [None]
  - ANAEMIA POSTOPERATIVE [None]
